FAERS Safety Report 22980315 (Version 2)
Quarter: 2023Q4

REPORT INFORMATION
  Report Type: Spontaneous
  Country: FR (occurrence: FR)
  Receive Date: 20230925
  Receipt Date: 20231005
  Transmission Date: 20240110
  Serious: Yes (Death, Other)
  Sender: FDA-Public Use
  Company Number: FR-INCYTE CORPORATION-2023IN009774

PATIENT

DRUGS (21)
  1. TAFASITAMAB [Suspect]
     Active Substance: TAFASITAMAB
     Indication: Diffuse large B-cell lymphoma
     Dosage: 972 MILLIGRAM (12MG/KG) D1,D4,D8,D15,D22 FOR THE FIRST CYCLE, THEN EVERY WEEK FOR C2 AND C3, C4 ADMI
     Route: 042
     Dates: start: 20220906, end: 20221214
  2. BISOPROLOL [Concomitant]
     Active Substance: BISOPROLOL\BISOPROLOL FUMARATE
     Indication: Product used for unknown indication
     Dosage: 5 MILLIGRAM, QD (IN THE MORNING)
     Route: 065
     Dates: end: 20221214
  3. DEXAMETHASONE [Concomitant]
     Active Substance: DEXAMETHASONE
     Indication: Cytoreductive surgery
     Dosage: UNK
     Route: 065
     Dates: start: 20220905
  4. MORPHINE [Concomitant]
     Active Substance: MORPHINE
     Indication: Symptomatic treatment
     Dosage: UNK
     Route: 065
     Dates: start: 20220904
  5. PREGABALIN [Concomitant]
     Active Substance: PREGABALIN
     Indication: Symptomatic treatment
     Dosage: 20 MILLIGRAM, BID
     Route: 065
     Dates: start: 20220904
  6. COTRIMOXAZOLE [Concomitant]
     Active Substance: SULFAMETHOXAZOLE\TRIMETHOPRIM
     Indication: Prophylaxis
     Dosage: UNK
     Route: 065
     Dates: start: 20220819
  7. VALACYCLOVIR HYDROCHLORIDE [Concomitant]
     Active Substance: VALACYCLOVIR HYDROCHLORIDE
     Indication: Varicella zoster virus infection
     Dosage: 500 MILLIGRAM, BID
     Route: 065
     Dates: start: 20220227
  8. APIXABAN [Concomitant]
     Active Substance: APIXABAN
     Indication: Atrial fibrillation
     Dosage: UNK
     Route: 065
     Dates: start: 20220715
  9. FUROSEMIDE [Concomitant]
     Active Substance: FUROSEMIDE
     Indication: Hypertension
     Dosage: 80 MILLIGRAM, QD (40MG 2 TABLETS IN THE MORNING)
     Route: 065
     Dates: start: 20220227
  10. BISOPROLOL [Concomitant]
     Active Substance: BISOPROLOL\BISOPROLOL FUMARATE
     Indication: Hypertension
     Dosage: UNK
     Route: 065
     Dates: start: 20220227
  11. EZETIMIBE [Concomitant]
     Active Substance: EZETIMIBE
     Indication: Cardiovascular disorder
     Dosage: 10 MILLIGRAM, QD
     Route: 065
     Dates: start: 20220227
  12. PANTOPRAZOLE [Concomitant]
     Active Substance: PANTOPRAZOLE
     Indication: Prophylaxis
     Dosage: 40 MILLIGRAM, QD (THE EVENING)
     Route: 065
     Dates: start: 20220227
  13. TAMSULOSIN HYDROCHLORIDE [Concomitant]
     Active Substance: TAMSULOSIN HYDROCHLORIDE
     Indication: Prostatomegaly
     Dosage: 0.4 MILLIGRAM, QD (THE EVENING)
     Route: 048
     Dates: start: 20220227
  14. HERBALS\SAW PALMETTO [Concomitant]
     Active Substance: HERBALS\SAW PALMETTO
     Indication: Prostatomegaly
     Dosage: UNK
     Route: 065
     Dates: start: 20220227
  15. LENALIDOMIDE [Concomitant]
     Active Substance: LENALIDOMIDE
     Indication: Product used for unknown indication
     Dosage: 25 MILLIGRAM, QD
     Route: 065
  16. BACTRIM [Concomitant]
     Active Substance: SULFAMETHOXAZOLE\TRIMETHOPRIM
     Indication: Product used for unknown indication
     Dosage: 1 PER DAY / 3 DAYS PER WEEK
     Route: 065
  17. ELIQUIS [Concomitant]
     Active Substance: APIXABAN
     Indication: Product used for unknown indication
     Dosage: 5 MILLIGRAM, BID
     Route: 065
  18. OXYCODONE [Concomitant]
     Active Substance: OXYCODONE
     Indication: Product used for unknown indication
     Dosage: 30 MILLIGRAM, BID
  19. PRAZEPAM [Concomitant]
     Active Substance: PRAZEPAM
     Indication: Product used for unknown indication
     Dosage: 10 MILLIGRAM, QD (THE EVENING)
     Route: 065
  20. CETIRIZINE [Concomitant]
     Active Substance: CETIRIZINE HYDROCHLORIDE
     Indication: Product used for unknown indication
     Dosage: 10 MILLIGRAM, QD (THE EVENING)
     Route: 065
  21. OXYCODONE HYDROCHLORIDE [Concomitant]
     Active Substance: OXYCODONE HYDROCHLORIDE
     Indication: Product used for unknown indication
     Dosage: 5 MILLIGRAM, Q4H (IF PAIN)
     Route: 065

REACTIONS (5)
  - Diffuse large B-cell lymphoma [Fatal]
  - Disease progression [Fatal]
  - Hypotension [Unknown]
  - Oedema [Unknown]
  - Drug ineffective [Unknown]

NARRATIVE: CASE EVENT DATE: 20221109
